FAERS Safety Report 8266908-4 (Version None)
Quarter: 2012Q2

REPORT INFORMATION
  Report Type: 
  Country: None (occurrence: None)
  Receive Date: 20120404
  Receipt Date: 20120404
  Transmission Date: 20120825
  Serious: Yes (Hospitalization)
  Sender: FDA-Public Use
  Company Number: None

PATIENT
  Sex: Male
  Weight: 107.5 kg

DRUGS (2)
  1. RIFAMPICIN [Suspect]
  2. RIFAMPICIN [Suspect]
     Indication: MULTIPLE SYSTEM ATROPHY
     Dosage: 300 MG BID
     Dates: start: 20110916

REACTIONS (4)
  - UNRESPONSIVE TO STIMULI [None]
  - IMMOBILE [None]
  - EYE MOVEMENT DISORDER [None]
  - PULMONARY EMBOLISM [None]
